FAERS Safety Report 9027364 (Version 1)
Quarter: 2013Q1

REPORT INFORMATION
  Report Type: Report from Study
  Country: VE (occurrence: VE)
  Receive Date: 20130123
  Receipt Date: 20130123
  Transmission Date: 20140127
  Serious: Yes (Hospitalization, Other)
  Sender: FDA-Public Use
  Company Number: VE-ABBOTT-13P-178-1038410-00

PATIENT
  Sex: Female
  Weight: 67 kg

DRUGS (2)
  1. HUMIRA [Suspect]
     Indication: RHEUMATOID ARTHRITIS
     Route: 058
     Dates: start: 20091218, end: 201205
  2. PLAQUINOL [Concomitant]
     Indication: RHEUMATOID ARTHRITIS

REACTIONS (3)
  - Immunosuppression [Recovering/Resolving]
  - Inflammation [Recovering/Resolving]
  - Weight decreased [Recovered/Resolved]
